FAERS Safety Report 5105141-1 (Version None)
Quarter: 2006Q3

REPORT INFORMATION
  Report Type: 
  Country: None (occurrence: None)
  Receive Date: 20060914
  Receipt Date: 20060823
  Transmission Date: 20061208
  Serious: Yes (Hospitalization)
  Sender: FDA-Public Use
  Company Number: US-MERCK-0608USA05451

PATIENT
  Age: 82 Year
  Sex: Female
  Weight: 54 kg

DRUGS (4)
  1. FOSAMAX [Suspect]
     Indication: OSTEOPENIA
     Route: 048
     Dates: start: 19860101
  2. VERAPAMIL [Concomitant]
     Route: 065
  3. DIOVAN [Concomitant]
     Route: 065
  4. AMOXICILLIN [Concomitant]
     Route: 065

REACTIONS (4)
  - CONSTIPATION [None]
  - HAEMATOCHEZIA [None]
  - MUSCLE SPASMS [None]
  - TOOTH INFECTION [None]
